FAERS Safety Report 5385794-3 (Version None)
Quarter: 2007Q3

REPORT INFORMATION
  Report Type: 
  Country: None (occurrence: None)
  Receive Date: 20070710
  Receipt Date: 20061221
  Transmission Date: 20080115
  Serious: Yes (Hospitalization, Other)
  Sender: FDA-Public Use
  Company Number: US-2006-026980

PATIENT
  Age: 41 Year
  Sex: Female
  Weight: 95 kg

DRUGS (2)
  1. YASMIN [Suspect]
     Indication: MENORRHAGIA
     Dates: start: 20060701, end: 20060901
  2. FERROUS SULFATE TAB [Concomitant]

REACTIONS (2)
  - MUSCULOSKELETAL PAIN [None]
  - PULMONARY EMBOLISM [None]
